FAERS Safety Report 6925396-8 (Version None)
Quarter: 2010Q3

REPORT INFORMATION
  Report Type: 
  Country: None (occurrence: None)
  Receive Date: 20100816
  Receipt Date: 20100806
  Transmission Date: 20110219
  Serious: Yes (Hospitalization)
  Sender: FDA-Public Use
  Company Number: US-ROCHE-524299

PATIENT
  Sex: Female

DRUGS (10)
  1. BEVACIZUMAB [Suspect]
     Dosage: 1070 INITAL DOSE/ LLAST DOSE PRIOR TO SAE 03AUG07 /1070MG/DOSE DELAYED ON 03AUG07/5 DOSES
     Route: 042
     Dates: start: 20070504
  2. ABRAXANE [Suspect]
     Dosage: 260MG INITIAL DOSE/LAST DOSE PRIOR TO SAE 10AUG07 /180MG/ DOSE DELAYED ON 10AUG07/8 DOSES
     Route: 042
     Dates: start: 20070504
  3. ABRAXANE [Suspect]
     Indication: PRODUCT USED FOR UNKNOWN INDICATION
     Dosage: 180 MG, UNK
     Route: 065
  4. MOTRIN [Concomitant]
     Indication: PAIN
     Dosage: 2 TABLET, UNK
     Route: 048
     Dates: start: 19980101
  5. ASPIRIN [Concomitant]
     Indication: PROPHYLAXIS
     Dosage: 81 MG, UNK
     Route: 048
     Dates: start: 20040101
  6. PEPCID [Concomitant]
     Dosage: 20 MG, UNK
     Route: 048
     Dates: start: 20070518
  7. PREPARATION H [Concomitant]
     Route: 061
     Dates: start: 20070601
  8. LISINOPRIL [Concomitant]
     Indication: HYPERTENSION
     Dosage: 10 MG, UNK
     Route: 048
     Dates: start: 20040101
  9. CIPRO [Concomitant]
     Indication: DIVERTICULITIS
     Dosage: 500 MG, UNK
     Route: 048
     Dates: start: 20070806
  10. FLAGYL [Concomitant]
     Indication: DIVERTICULITIS
     Dosage: 50 MG, UNK
     Route: 048
     Dates: start: 20070806

REACTIONS (4)
  - ABDOMINAL PAIN [None]
  - GASTRIC ULCER [None]
  - HAEMATOCHEZIA [None]
  - PYREXIA [None]
